FAERS Safety Report 4596161-4 (Version None)
Quarter: 2005Q1

REPORT INFORMATION
  Report Type: 
  Country: None (occurrence: None)
  Receive Date: 20050302
  Receipt Date: 20050221
  Transmission Date: 20050727
  Serious: Yes (Other)
  Sender: FDA-Public Use
  Company Number: GB-ROCHE-396207

PATIENT
  Age: 80 Year
  Sex: Female
  Weight: 71 kg

DRUGS (11)
  1. TAMIFLU [Suspect]
     Indication: INFLUENZA
     Route: 048
     Dates: start: 20050126, end: 20050131
  2. PERINDOPRIL [Concomitant]
     Route: 065
  3. SENNA [Concomitant]
     Dosage: 5MG AT NIGHT.
     Route: 065
  4. TOLTERODINE [Concomitant]
     Dosage: 2MG AT NIGHT.
     Route: 065
  5. VITAMIN B COMPLEX CAP [Concomitant]
     Route: 065
  6. ALLOPURINOL [Concomitant]
     Route: 065
  7. ASPIRIN [Concomitant]
     Route: 065
  8. BUMETANIDE [Concomitant]
     Route: 065
  9. DIGOXIN [Concomitant]
     Route: 065
  10. LACTULOSE [Concomitant]
     Dosage: 2X5ML PER PAY.
     Route: 065
  11. MOVELAT [Concomitant]
     Dosage: AS DIRECTED.
     Route: 065

REACTIONS (7)
  - CHROMATURIA [None]
  - CONDITION AGGRAVATED [None]
  - CONFUSIONAL STATE [None]
  - GENERAL PHYSICAL HEALTH DETERIORATION [None]
  - MALAISE [None]
  - PROTEINURIA [None]
  - URINE ODOUR ABNORMAL [None]
